FAERS Safety Report 4290475-3 (Version None)
Quarter: 2004Q1

REPORT INFORMATION
  Report Type: 
  Country: None (occurrence: None)
  Receive Date: 20040126
  Receipt Date: 20030908
  Transmission Date: 20041129
  Serious: No
  Sender: FDA-Public Use
  Company Number: USA030638807

PATIENT
  Age: 72 Year
  Sex: Female
  Weight: 73 kg

DRUGS (13)
  1. FORTEO [Suspect]
     Indication: OSTEOPOROSIS
     Dosage: 20 UG/DAY
     Dates: start: 20030601
  2. BUSPAR [Concomitant]
  3. ZOLOFT [Concomitant]
  4. TRILEPTAL [Concomitant]
  5. SYNTHROID [Concomitant]
  6. ACTONEL [Concomitant]
  7. ESTRACE [Concomitant]
  8. ESTRADIOL [Concomitant]
  9. CENTRUM [Concomitant]
  10. VITAMIN E [Concomitant]
  11. SOMA [Concomitant]
  12. MAGNESIUM CITRATE [Concomitant]
  13. CORAL CALCIUM DAILY [Concomitant]

REACTIONS (5)
  - ARTHRALGIA [None]
  - DIZZINESS [None]
  - HERNIA [None]
  - MYALGIA [None]
  - NAUSEA [None]
